FAERS Safety Report 5334822-X (Version None)
Quarter: 2007Q2

REPORT INFORMATION
  Report Type: 
  Country: None (occurrence: None)
  Receive Date: 20070525
  Receipt Date: 20070521
  Transmission Date: 20071010
  Serious: Yes (Other)
  Sender: FDA-Public Use
  Company Number: US-ELI_LILLY_AND_COMPANY-US200705005253

PATIENT
  Age: 74 Year
  Sex: Female

DRUGS (2)
  1. GEMZAR [Suspect]
     Indication: BREAST CANCER
     Dosage: UNK, UNK
     Dates: start: 20060901
  2. TAXOL [Concomitant]
     Indication: BREAST CANCER
     Dosage: UNK, UNK
     Dates: start: 20060901

REACTIONS (2)
  - CAPILLARY LEAK SYNDROME [None]
  - OEDEMA PERIPHERAL [None]
